FAERS Safety Report 4408271-2 (Version None)
Quarter: 2004Q3

REPORT INFORMATION
  Report Type: 
  Country: None (occurrence: None)
  Receive Date: 20040722
  Receipt Date: 20040706
  Transmission Date: 20050211
  Serious: Yes (Hospitalization)
  Sender: FDA-Public Use
  Company Number: DSA_24636_2004

PATIENT
  Age: 33 Year
  Sex: Female

DRUGS (3)
  1. TEMESTA [Suspect]
     Dosage: 10 MG ONCE PO
     Route: 048
     Dates: start: 20040623, end: 20040623
  2. CLORAZEPATE DIPOTASSIUM [Suspect]
     Dates: start: 20040623, end: 20040623
  3. ALCOHOL [Suspect]
     Dates: start: 20040623, end: 20040623

REACTIONS (5)
  - GENERAL PHYSICAL HEALTH DETERIORATION [None]
  - INTENTIONAL OVERDOSE [None]
  - MULTIPLE DRUG OVERDOSE [None]
  - SOMNOLENCE [None]
  - SUICIDE ATTEMPT [None]
